FAERS Safety Report 5920326-X (Version None)
Quarter: 2008Q4

REPORT INFORMATION
  Report Type: 
  Country: None (occurrence: None)
  Receive Date: 20081016
  Receipt Date: 20081007
  Transmission Date: 20090506
  Serious: Yes (Other)
  Sender: FDA-Public Use
  Company Number: PHHY2008FR22394

PATIENT
  Sex: Male

DRUGS (7)
  1. TAREG [Suspect]
     Dosage: 40 MG PER DAY
     Dates: start: 20080118
  2. LANTUS [Suspect]
  3. SELOKEN [Concomitant]
     Dosage: 100 MG DAILY
  4. IKOREL [Concomitant]
     Dosage: 20 MG DAILY
  5. KARDEGIC [Concomitant]
     Dosage: 75 MG P
  6. GLUCOVANCE [Concomitant]
  7. INEGY [Concomitant]

REACTIONS (1)
  - GYNAECOMASTIA [None]
